FAERS Safety Report 8158208-8 (Version None)
Quarter: 2012Q1

REPORT INFORMATION
  Report Type: 
  Country: None (occurrence: None)
  Receive Date: 20120222
  Receipt Date: 20120209
  Transmission Date: 20120608
  Serious: Yes (Other)
  Sender: FDA-Public Use
  Company Number: US-MYLANLABS-2012S1003271

PATIENT
  Age: 19 Year
  Sex: Male

DRUGS (2)
  1. METHOTREXATE [Suspect]
     Indication: BONE SARCOMA
     Dosage: HIGH-DOSE; 4 CYCLES CONCURRENTLY WITH PEGFILGRASTIM
     Route: 065
  2. NEULASTA [Suspect]
     Indication: BONE SARCOMA
     Dosage: 4 CYCLES CONCURRENTLY WITH METHOTREXATE
     Route: 065

REACTIONS (2)
  - ACUTE MYELOID LEUKAEMIA [None]
  - MYELODYSPLASTIC SYNDROME [None]
